FAERS Safety Report 8080144-6 (Version None)
Quarter: 2012Q1

REPORT INFORMATION
  Report Type: 
  Country: None (occurrence: None)
  Receive Date: 20120129
  Receipt Date: 20111018
  Transmission Date: 20120608
  Serious: No
  Sender: FDA-Public Use
  Company Number: US-ABBOTT-11P-163-0866225-00

PATIENT
  Sex: Female

DRUGS (3)
  1. LOPRESSOR [Concomitant]
     Indication: PRODUCT USED FOR UNKNOWN INDICATION
  2. LISINOPRIL [Concomitant]
     Indication: PRODUCT USED FOR UNKNOWN INDICATION
  3. HUMIRA [Suspect]
     Indication: PSORIATIC ARTHROPATHY
     Route: 058
     Dates: start: 20100701

REACTIONS (5)
  - INJECTION SITE ERYTHEMA [None]
  - NAUSEA [None]
  - INJECTION SITE REACTION [None]
  - INJECTION SITE SWELLING [None]
  - DRUG INEFFECTIVE [None]
